FAERS Safety Report 20839501 (Version 1)
Quarter: 2022Q2

REPORT INFORMATION
  Report Type: Report from Study
  Country: US (occurrence: US)
  Receive Date: 20220517
  Receipt Date: 20220517
  Transmission Date: 20220720
  Serious: Yes (Hospitalization)
  Sender: FDA-Public Use
  Company Number: US-OTSUKA-2022_027472

PATIENT
  Age: 76 Year
  Sex: Female

DRUGS (4)
  1. TOLVAPTAN [Suspect]
     Active Substance: TOLVAPTAN
     Indication: Hyponatraemia
     Dosage: 15 MG, QOD
     Route: 048
     Dates: start: 201903
  2. TOLVAPTAN [Suspect]
     Active Substance: TOLVAPTAN
     Indication: Blood osmolarity decreased
  3. TOLVAPTAN [Suspect]
     Active Substance: TOLVAPTAN
     Indication: Acromegaly
  4. TOLVAPTAN [Suspect]
     Active Substance: TOLVAPTAN
     Indication: Gigantism

REACTIONS (3)
  - Laboratory test abnormal [Unknown]
  - Product use in unapproved indication [Unknown]
  - Inappropriate schedule of product administration [Unknown]

NARRATIVE: CASE EVENT DATE: 20190301
